FAERS Safety Report 16601728 (Version 2)
Quarter: 2019Q3

REPORT INFORMATION
  Report Type: Report from Study
  Country: CA (occurrence: CA)
  Receive Date: 20190719
  Receipt Date: 20190729
  Transmission Date: 20191004
  Serious: Yes (Hospitalization, Other)
  Sender: FDA-Public Use
  Company Number: CA-GLAXOSMITHKLINE-CA2019AMR127579

PATIENT
  Sex: Male

DRUGS (5)
  1. SYMBICORT [Suspect]
     Active Substance: BUDESONIDE\FORMOTEROL FUMARATE DIHYDRATE
     Indication: PRODUCT USED FOR UNKNOWN INDICATION
     Dosage: 1 PUFF(S), BID
  2. SPIRIVA [Suspect]
     Active Substance: TIOTROPIUM BROMIDE MONOHYDRATE
     Indication: PRODUCT USED FOR UNKNOWN INDICATION
     Dosage: 2 PUFF(S), QD(2.5 UG)
  3. PREDNISONE. [Suspect]
     Active Substance: PREDNISONE
     Indication: PRODUCT USED FOR UNKNOWN INDICATION
     Dosage: UNK
     Dates: start: 201903
  4. PREDNISONE. [Suspect]
     Active Substance: PREDNISONE
     Dosage: UNK
     Dates: start: 201904
  5. SALBUTAMOL SULPHATE [Suspect]
     Active Substance: ALBUTEROL SULFATE
     Indication: PRODUCT USED FOR UNKNOWN INDICATION
     Dosage: UNK, PRN

REACTIONS (13)
  - Therapeutic product effect incomplete [Unknown]
  - Pulmonary mass [Unknown]
  - Sputum discoloured [Recovering/Resolving]
  - Pulmonary embolism [Unknown]
  - Dyspnoea [Unknown]
  - Respiratory tract infection [Unknown]
  - Upper gastrointestinal haemorrhage [Unknown]
  - Emphysema [Unknown]
  - Hospitalisation [Unknown]
  - Obstructive airways disorder [Unknown]
  - Exercise tolerance decreased [Recovering/Resolving]
  - Productive cough [Unknown]
  - Rectal haemorrhage [Unknown]
